FAERS Safety Report 5280083-X (Version None)
Quarter: 2007Q1

REPORT INFORMATION
  Report Type: 
  Country: None (occurrence: None)
  Receive Date: 20061229
  Receipt Date: 20061020
  Transmission Date: 20070707
  Serious: Yes (Other)
  Sender: FDA-Public Use
  Company Number: 2006UW20273

PATIENT
  Age: 66 Year
  Sex: Female
  Weight: 57.152 kg

DRUGS (6)
  1. CRESTOR [Suspect]
     Indication: BLOOD CHOLESTEROL INCREASED
     Dosage: 5 MG PO
     Route: 048
     Dates: start: 20061016
  2. TOPROL-XL [Concomitant]
  3. NORVASC [Concomitant]
  4. FOSAMAX [Concomitant]
  5. TYLENOL [Concomitant]
  6. ECOTRIN [Concomitant]

REACTIONS (4)
  - ABDOMINAL PAIN [None]
  - MOOD SWINGS [None]
  - MUSCULAR WEAKNESS [None]
  - NAUSEA [None]
